FAERS Safety Report 4692347-9 (Version None)
Quarter: 2005Q2

REPORT INFORMATION
  Report Type: 
  Country: None (occurrence: None)
  Receive Date: 20050614
  Receipt Date: 20050601
  Transmission Date: 20051028
  Serious: Yes (Other)
  Sender: FDA-Public Use
  Company Number: 2005083495

PATIENT
  Age: 30 Year
  Sex: Female

DRUGS (3)
  1. SOMAVERT [Suspect]
     Indication: ACROMEGALY
     Dosage: 10 MG (10 MG DAILY) SUBCUTANEOUS
     Route: 058
     Dates: start: 20050305
  2. DIANE (CYPROTERONE ACETATE, ETHINYLESTRADIOL) [Suspect]
     Indication: ILL-DEFINED DISORDER
     Dosage: CYCLIC ORAL
     Route: 048
     Dates: start: 20050201
  3. SANDOSTEN COMP [Concomitant]

REACTIONS (4)
  - CHOLELITHIASIS [None]
  - LIVER PALPABLE SUBCOSTAL [None]
  - NAUSEA [None]
  - PAIN [None]
